FAERS Safety Report 5406538-2 (Version None)
Quarter: 2007Q3

REPORT INFORMATION
  Report Type: 
  Country: None (occurrence: None)
  Receive Date: 20070806
  Receipt Date: 20070730
  Transmission Date: 20080115
  Serious: Yes (Death, Hospitalization, Other)
  Sender: FDA-Public Use
  Company Number: US-PFIZER INC-2007016192

PATIENT
  Sex: Male
  Weight: 136.1 kg

DRUGS (2)
  1. CELEBREX [Suspect]
     Indication: OSTEOARTHRITIS
     Dates: start: 20021211, end: 20050201
  2. BEXTRA [Suspect]
     Indication: OSTEOARTHRITIS
     Dates: start: 20040801, end: 20050201

REACTIONS (5)
  - CEREBROVASCULAR ACCIDENT [None]
  - INJURY [None]
  - OBESITY [None]
  - SLEEP APNOEA SYNDROME [None]
  - STAPHYLOCOCCAL INFECTION [None]
